FAERS Safety Report 16871111 (Version 2)
Quarter: 2019Q4

REPORT INFORMATION
  Report Type: Report from Study
  Country: None (occurrence: US)
  Receive Date: 20190930
  Receipt Date: 20191110
  Transmission Date: 20200122
  Serious: Yes (Other)
  Sender: FDA-Public Use
  Company Number: US-ABBVIE-19K-163-2943878-00

PATIENT
  Sex: Female

DRUGS (2)
  1. HUMIRA [Suspect]
     Active Substance: ADALIMUMAB
     Indication: UVEITIS
     Route: 058
  2. PREDNISONE. [Concomitant]
     Active Substance: PREDNISONE
     Indication: PRODUCT USED FOR UNKNOWN INDICATION

REACTIONS (7)
  - Gluten sensitivity [Unknown]
  - Oesophageal operation [Unknown]
  - Oesophageal operation [Recovered/Resolved]
  - Hiatus hernia [Unknown]
  - Surgical failure [Unknown]
  - Post procedural complication [Unknown]
  - Uveitis [Unknown]
